FAERS Safety Report 7510481-2 (Version None)
Quarter: 2011Q2

REPORT INFORMATION
  Report Type: 
  Country: None (occurrence: None)
  Receive Date: 20110528
  Receipt Date: 20110520
  Transmission Date: 20111010
  Serious: Yes (Other)
  Sender: FDA-Public Use
  Company Number: US-AMGEN-USASP2011018585

PATIENT
  Age: 57 Year
  Sex: Female

DRUGS (4)
  1. ENBREL [Suspect]
     Indication: PSORIATIC ARTHROPATHY
  2. ENBREL [Suspect]
     Indication: PSORIASIS
  3. METHOTREXATE [Concomitant]
     Dosage: 8 MG, QWK
     Dates: start: 20100101
  4. ENBREL [Suspect]
     Indication: RHEUMATOID ARTHRITIS
     Dosage: 25 MG, 2 TIMES/WK
     Dates: start: 20100101

REACTIONS (8)
  - DISTURBANCE IN ATTENTION [None]
  - RHEUMATOID ARTHRITIS [None]
  - DEPRESSION [None]
  - FEELING ABNORMAL [None]
  - INJECTION SITE HAEMATOMA [None]
  - AMNESIA [None]
  - WEIGHT DECREASED [None]
  - HEADACHE [None]
